FAERS Safety Report 6691365-9 (Version None)
Quarter: 2010Q2

REPORT INFORMATION
  Report Type: 
  Country: None (occurrence: None)
  Receive Date: 20100422
  Receipt Date: 20100412
  Transmission Date: 20101027
  Serious: Yes (Death, Other)
  Sender: FDA-Public Use
  Company Number: IR-TYCO HEALTHCARE/MALLINCKRODT-T201000997

PATIENT
  Age: 29 Year
  Sex: Male

DRUGS (1)
  1. TRAMADOL HCL [Suspect]
     Dosage: 8200 MG, UNK
     Route: 048

REACTIONS (7)
  - CARDIO-RESPIRATORY ARREST [None]
  - COMA [None]
  - COMPLETED SUICIDE [None]
  - CONVULSION [None]
  - DRUG TOXICITY [None]
  - HYPOREFLEXIA [None]
  - MYDRIASIS [None]
